FAERS Safety Report 15645857 (Version 1)
Quarter: 2018Q4

REPORT INFORMATION
  Report Type: Spontaneous
  Country: IN (occurrence: IN)
  Receive Date: 20181121
  Receipt Date: 20181121
  Transmission Date: 20190205
  Serious: Yes (Other)
  Sender: FDA-Public Use
  Company Number: PHHY2018IN160645

PATIENT

DRUGS (2)
  1. KRYXANA [Suspect]
     Active Substance: RIBOCICLIB
     Indication: HER-2 POSITIVE BREAST CANCER
  2. KRYXANA [Suspect]
     Active Substance: RIBOCICLIB
     Indication: HORMONE REFRACTORY BREAST CANCER
     Dosage: 200 MG, BID
     Route: 048
     Dates: start: 20181114

REACTIONS (1)
  - Ascites [Unknown]
